FAERS Safety Report 17135145 (Version 1)
Quarter: 2019Q4

REPORT INFORMATION
  Report Type: Spontaneous
  Country: US (occurrence: US)
  Receive Date: 20191210
  Receipt Date: 20191210
  Transmission Date: 20200122
  Serious: No
  Sender: FDA-Public Use
  Company Number: US-PFIZER INC-2019528781

PATIENT
  Age: 65 Year
  Sex: Female
  Weight: 86.18 kg

DRUGS (1)
  1. PREGABALIN. [Suspect]
     Active Substance: PREGABALIN
     Indication: DIABETIC NEUROPATHY
     Dosage: 25 MG, THRICE DAILY
     Route: 048
     Dates: end: 201911

REACTIONS (4)
  - Scratch [Unknown]
  - Rash [Recovering/Resolving]
  - Contusion [Unknown]
  - Drug hypersensitivity [Unknown]

NARRATIVE: CASE EVENT DATE: 201909
